FAERS Safety Report 11735830 (Version 2)
Quarter: 2016Q1

REPORT INFORMATION
  Report Type: Spontaneous
  Country: US (occurrence: US)
  Receive Date: 20151113
  Receipt Date: 20160103
  Transmission Date: 20160525
  Serious: No
  Sender: FDA-Public Use
  Company Number: US-JNJFOC-20151020711

PATIENT
  Age: 57 Year
  Sex: Female

DRUGS (18)
  1. METFORMIN [Concomitant]
     Active Substance: METFORMIN HYDROCHLORIDE
     Dosage: ONE TAB IN MORNING WITH BREAKFAST, ONE TAB WITH DINNER AND 2 TABS EVERY NIGHT AT BEDTIME
     Route: 065
     Dates: start: 201110
  2. ALLEGRA [Concomitant]
     Active Substance: FEXOFENADINE HYDROCHLORIDE
     Route: 065
  3. DYMISTA [Concomitant]
     Active Substance: AZELASTINE HYDROCHLORIDE\FLUTICASONE PROPIONATE
     Dosage: 137 MCG- 50 MCG
     Route: 045
  4. MUCINEX [Concomitant]
     Active Substance: GUAIFENESIN
     Dates: start: 201505
  5. VENTOLIN HFA [Concomitant]
     Active Substance: ALBUTEROL SULFATE
     Route: 055
     Dates: start: 201105
  6. BIOTIN [Concomitant]
     Active Substance: BIOTIN
     Route: 065
     Dates: start: 201501
  7. CRESTOR [Concomitant]
     Active Substance: ROSUVASTATIN CALCIUM
     Dosage: BEDTIME
     Route: 048
     Dates: start: 201301
  8. VITAMIN D3 [Concomitant]
     Active Substance: CHOLECALCIFEROL
     Route: 065
     Dates: start: 201501
  9. ASPIRIN. [Concomitant]
     Active Substance: ASPIRIN
     Route: 048
     Dates: start: 201208
  10. NASACORT [Suspect]
     Active Substance: TRIAMCINOLONE ACETONIDE
     Indication: PRODUCT USED FOR UNKNOWN INDICATION
     Route: 045
     Dates: start: 20140911, end: 20151030
  11. FLUCONAZOLE. [Concomitant]
     Active Substance: FLUCONAZOLE
     Route: 048
  12. PREVACID [Concomitant]
     Active Substance: LANSOPRAZOLE
     Route: 048
  13. SUDAFED PE [Concomitant]
     Dosage: AS NECESSARY
     Route: 065
     Dates: start: 201505
  14. SUMATRIPTAN. [Concomitant]
     Active Substance: SUMATRIPTAN
     Indication: MIGRAINE
     Route: 065
     Dates: start: 201104
  15. INVOKANA [Suspect]
     Active Substance: CANAGLIFLOZIN
     Indication: TYPE 2 DIABETES MELLITUS
     Route: 048
     Dates: start: 20150914, end: 20151022
  16. CALTRATE 600+D [Concomitant]
     Route: 065
     Dates: start: 201501
  17. FLOVENT HFA [Concomitant]
     Active Substance: FLUTICASONE PROPIONATE
     Dosage: AS NECESSARY
     Route: 065
     Dates: start: 201105
  18. VICTOZA [Concomitant]
     Active Substance: LIRAGLUTIDE
     Dosage: 0.6 MG/ 0.1 ML (18 MG/3 ML)
     Route: 058
     Dates: start: 201309

REACTIONS (3)
  - Eye swelling [Recovered/Resolved]
  - Vulvovaginal candidiasis [Unknown]
  - Urine output increased [Unknown]

NARRATIVE: CASE EVENT DATE: 20150915
